FAERS Safety Report 24584630 (Version 2)
Quarter: 2024Q4

REPORT INFORMATION
  Report Type: Report from Study
  Country: GB (occurrence: GB)
  Receive Date: 20241106
  Receipt Date: 20241115
  Transmission Date: 20250115
  Serious: Yes (Hospitalization, Other)
  Sender: ARGENX BVBA
  Company Number: GB-ARGENX-2024-ARGX-GB009131

PATIENT

DRUGS (2)
  1. VYVGART [Suspect]
     Active Substance: EFGARTIGIMOD ALFA-FCAB
     Indication: Myasthenia gravis
     Route: 058
  2. EFGARTIGIMOD ALFA [Suspect]
     Active Substance: EFGARTIGIMOD ALFA
     Indication: Myasthenia gravis
     Dosage: UNK
     Route: 042

REACTIONS (5)
  - Myasthenia gravis [Not Recovered/Not Resolved]
  - Lethargy [Unknown]
  - Dyspnoea at rest [Recovering/Resolving]
  - Fatigue [Recovered/Resolved]
  - Therapy non-responder [Unknown]
